FAERS Safety Report 4802981-0 (Version None)
Quarter: 2005Q4

REPORT INFORMATION
  Report Type: 
  Country: None (occurrence: None)
  Receive Date: 20051013
  Receipt Date: 20050927
  Transmission Date: 20060501
  Serious: Yes (Hospitalization, Other)
  Sender: FDA-Public Use
  Company Number: USA0508106793

PATIENT
  Age: 81 Year
  Sex: Female
  Weight: 52 kg

DRUGS (7)
  1. FORTEO [Suspect]
     Indication: OSTEOPOROSIS
     Dosage: 20 UG/1 DAY
     Dates: start: 20050101, end: 20050701
  2. LISINOPRIL [Concomitant]
  3. OSCAL (CALCIUM CARBONATE) [Concomitant]
  4. COLACE (DOCUSATE SODIUM) [Concomitant]
  5. SYNTHROID [Concomitant]
  6. LACTULOSE [Concomitant]
  7. PRILOSEC [Concomitant]

REACTIONS (1)
  - EMBOLIC STROKE [None]
